FAERS Safety Report 16263709 (Version 1)
Quarter: 2019Q2

REPORT INFORMATION
  Report Type: Spontaneous
  Country: ES (occurrence: ES)
  Receive Date: 20190502
  Receipt Date: 20190502
  Transmission Date: 20190711
  Serious: Yes (Hospitalization)
  Sender: FDA-Public Use
  Company Number: ES-IPSEN BIOPHARMACEUTICALS, INC.-2019-06967

PATIENT
  Age: 21 Year
  Sex: Female

DRUGS (1)
  1. LANREOTIDE AUTOGEL [Suspect]
     Active Substance: LANREOTIDE
     Indication: SECRETORY ADENOMA OF PITUITARY
     Route: 065

REACTIONS (2)
  - Cerebrospinal fluid leakage [Unknown]
  - Meningitis bacterial [Unknown]
